FAERS Safety Report 4517551-1 (Version None)
Quarter: 2004Q4

REPORT INFORMATION
  Report Type: 
  Country: None (occurrence: None)
  Receive Date: 20041130
  Receipt Date: 20041115
  Transmission Date: 20050328
  Serious: Yes (Disabling)
  Sender: FDA-Public Use
  Company Number: CA_041007309

PATIENT
  Age: 60 Year
  Sex: Female

DRUGS (6)
  1. GEMZAR [Suspect]
     Indication: FIBROSARCOMA
     Dosage: 560 MG/M2 OTHER
     Route: 050
     Dates: start: 20040211, end: 20040818
  2. GABAPENTIN [Concomitant]
  3. AMITRIPTYLINE HCL [Concomitant]
  4. DOMPERIDONE [Concomitant]
  5. DEXAMETHASONE [Concomitant]
  6. DOXORUBICIN HYDROCHLORIDE [Concomitant]

REACTIONS (10)
  - ANAEMIA [None]
  - BONE MARROW DEPRESSION [None]
  - CARDIAC FAILURE CONGESTIVE [None]
  - CARDIOMEGALY [None]
  - CARDIOTOXICITY [None]
  - GENERALISED OEDEMA [None]
  - HYPOPROTEINAEMIA [None]
  - LEFT VENTRICULAR FAILURE [None]
  - RASH [None]
  - RENAL FAILURE [None]
